FAERS Safety Report 20120994 (Version 3)
Quarter: 2022Q1

REPORT INFORMATION
  Report Type: Spontaneous
  Country: RU (occurrence: RU)
  Receive Date: 20211127
  Receipt Date: 20220120
  Transmission Date: 20220424
  Serious: Yes (Hospitalization, Other)
  Sender: FDA-Public Use
  Company Number: RU-002147023-NVSC2021RU268647

PATIENT
  Sex: Female

DRUGS (7)
  1. ERENUMAB [Suspect]
     Active Substance: ERENUMAB
     Indication: Migraine without aura
     Dosage: 70 MILLIGRAM, QMO
     Route: 058
     Dates: start: 20210923
  2. ERENUMAB [Suspect]
     Active Substance: ERENUMAB
     Dosage: UNK
     Route: 065
     Dates: start: 202110
  3. ZOLMITRIPTAN [Concomitant]
     Active Substance: ZOLMITRIPTAN
     Indication: Product used for unknown indication
     Dosage: 2.5 MILLIGRAM, QD
     Route: 065
  4. CHLORPROTHIXENE [Concomitant]
     Active Substance: CHLORPROTHIXENE
     Indication: Product used for unknown indication
     Dosage: 15-30 MG, QD
     Route: 065
  5. CARVEDILOL [Concomitant]
     Active Substance: CARVEDILOL
     Indication: Product used for unknown indication
     Route: 065
  6. PERINDOPRIL [Concomitant]
     Active Substance: PERINDOPRIL
     Indication: Product used for unknown indication
     Dosage: UNK
     Route: 065
  7. ROSUVASTATIN [Concomitant]
     Active Substance: ROSUVASTATIN
     Indication: Product used for unknown indication
     Dosage: 20 MILLIGRAM
     Route: 065

REACTIONS (1)
  - Hypertensive crisis [Unknown]
